FAERS Safety Report 4455512-1 (Version None)
Quarter: 2004Q3

REPORT INFORMATION
  Report Type: 
  Country: None (occurrence: None)
  Receive Date: 20040917
  Receipt Date: 20040907
  Transmission Date: 20050211
  Serious: Yes (Other)
  Sender: FDA-Public Use
  Company Number: 2004063309

PATIENT
  Sex: Female
  Weight: 71.2147 kg

DRUGS (9)
  1. NEURONTIN [Suspect]
     Indication: NEUROPATHY
     Dosage: 2400 MG (800 MG, 3 IN 1 D),
  2. ALL OTHER THERAPEUTIC PRODUCTS (ALL OTHER THERAPEUTIC PRODUCTS) [Concomitant]
  3. MOEXIPRIL HYDROCHLORIDE (MOEXIPRIL HYDROCHLORIDE) [Concomitant]
  4. PRAVASTATIN SODIUM [Concomitant]
  5. OS-CAL (CALCIUM, ERGOCALCIFEROL) [Concomitant]
  6. CENTRUM SILVER (ASCORBIC ACID, CALCIUM, MINERALS NOS, RETINOL, TOCOPHE [Concomitant]
  7. TOCOPHEROL CONCENTRATE CAP [Concomitant]
  8. ASPIRIN [Concomitant]
  9. CELECOXIB (CELECOXIB) [Concomitant]

REACTIONS (2)
  - ASTHENIA [None]
  - CARDIAC OPERATION [None]
